FAERS Safety Report 5388429-9 (Version None)
Quarter: 2007Q3

REPORT INFORMATION
  Report Type: 
  Country: None (occurrence: None)
  Receive Date: 20070716
  Receipt Date: 20070702
  Transmission Date: 20080115
  Serious: Yes (Other)
  Sender: FDA-Public Use
  Company Number: US-ELI_LILLY_AND_COMPANY-US200705004283

PATIENT
  Age: 7 Year
  Sex: Male
  Weight: 25.396 kg

DRUGS (1)
  1. STRATTERA [Suspect]
     Indication: ATTENTION DEFICIT/HYPERACTIVITY DISORDER
     Dosage: 36 MG, UNK
     Dates: start: 20041001, end: 20070426

REACTIONS (2)
  - NODAL RHYTHM [None]
  - SUPRAVENTRICULAR EXTRASYSTOLES [None]
